FAERS Safety Report 14694093 (Version 1)
Quarter: 2018Q1

REPORT INFORMATION
  Report Type: Spontaneous
  Country: CA (occurrence: CA)
  Receive Date: 20180329
  Receipt Date: 20180329
  Transmission Date: 20180509
  Serious: Yes (Other)
  Sender: FDA-Public Use
  Company Number: CA-JNJFOC-20180333288

PATIENT
  Age: 63 Year
  Sex: Male

DRUGS (1)
  1. TRAMACET [Suspect]
     Active Substance: ACETAMINOPHEN\TRAMADOL
     Indication: BACK PAIN
     Route: 048
     Dates: start: 201701

REACTIONS (1)
  - Lip and/or oral cavity cancer [Unknown]

NARRATIVE: CASE EVENT DATE: 201709
